FAERS Safety Report 4303964-X (Version None)
Quarter: 2004Q1

REPORT INFORMATION
  Report Type: 
  Country: None (occurrence: None)
  Receive Date: 20040225
  Receipt Date: 20040216
  Transmission Date: 20041129
  Serious: Yes (Disabling)
  Sender: FDA-Public Use
  Company Number: GB-ROCHE-358987

PATIENT
  Age: 4 Year
  Sex: Female
  Weight: 17 kg

DRUGS (1)
  1. CLONAZEPAM [Suspect]
     Route: 048

REACTIONS (7)
  - DEVELOPMENTAL DELAY [None]
  - DIARRHOEA [None]
  - FEELING ABNORMAL [None]
  - MENTAL IMPAIRMENT [None]
  - MUSCLE RIGIDITY [None]
  - RETCHING [None]
  - SPEECH DISORDER [None]
